FAERS Safety Report 9130380 (Version 2)
Quarter: 2013Q2

REPORT INFORMATION
  Report Type: Spontaneous
  Country: US (occurrence: US)
  Receive Date: 20130301
  Receipt Date: 20130412
  Transmission Date: 20140414
  Serious: Yes (Hospitalization)
  Sender: FDA-Public Use
  Company Number: US-009507513-1302USA011860

PATIENT
  Age: 69 Year
  Sex: Male

DRUGS (2)
  1. TICE BCG LIVE [Suspect]
     Indication: BLADDER CANCER
     Dosage: 4 MONTHS PRIOR
     Route: 043
  2. TICE BCG LIVE [Suspect]
     Dosage: 3 YEARS PRIOR
     Route: 043

REACTIONS (1)
  - Aortic aneurysm [Recovered/Resolved]
